FAERS Safety Report 8469329-4 (Version None)
Quarter: 2012Q2

REPORT INFORMATION
  Report Type: 
  Country: None (occurrence: None)
  Receive Date: 20120626
  Receipt Date: 20120613
  Transmission Date: 20120825
  Serious: Yes (Death)
  Sender: FDA-Public Use
  Company Number: GB-ROCHE-1050234

PATIENT
  Sex: Female

DRUGS (10)
  1. MOVIPREP [Concomitant]
  2. MORPHINE [Concomitant]
  3. ALENDRONATE SODIUM [Concomitant]
  4. LEVOTHYROXINE [Concomitant]
  5. FUROSEMIDE [Concomitant]
  6. MABTHERA [Suspect]
     Indication: PRODUCT USED FOR UNKNOWN INDICATION
     Dates: start: 20081001
  7. ACETAMINOPHEN [Concomitant]
  8. CALCICHEW D3 FORTE [Concomitant]
  9. TRAZODONE HCL [Concomitant]
     Dosage: NOCTE TO BE TAILED OFF
  10. PREDNISOLONE [Concomitant]

REACTIONS (2)
  - CARDIAC FAILURE CONGESTIVE [None]
  - BRONCHOPNEUMONIA [None]
